FAERS Safety Report 4451521-7 (Version None)
Quarter: 2004Q3

REPORT INFORMATION
  Report Type: 
  Country: None (occurrence: None)
  Receive Date: 20040915
  Receipt Date: 20040907
  Transmission Date: 20050211
  Serious: Yes (Hospitalization, Other)
  Sender: FDA-Public Use
  Company Number: 2004231211US

PATIENT
  Age: 55 Year
  Sex: Female

DRUGS (14)
  1. CELEBREX [Suspect]
     Dosage: 200 MG, QD
     Dates: start: 20000101
  2. ELAVIL [Concomitant]
  3. NEURONTIN [Concomitant]
  4. ALTACE [Concomitant]
  5. PROCARDIA XL [Concomitant]
  6. LORTAB [Concomitant]
  7. INSULIN [Concomitant]
  8. BUMEX [Concomitant]
  9. PREMARIN [Concomitant]
  10. AMOXICILLIN [Concomitant]
  11. PARAFON FORTE [Concomitant]
  12. POTASSIUM CHLORIDE [Concomitant]
  13. LOPRESSOR [Concomitant]
  14. LORTAB [Concomitant]

REACTIONS (30)
  - ABASIA [None]
  - ASTHENIA [None]
  - BACK PAIN [None]
  - BLOOD GLUCOSE INCREASED [None]
  - CARDIAC FAILURE CONGESTIVE [None]
  - CHILLS [None]
  - CONFUSIONAL STATE [None]
  - DEHYDRATION [None]
  - DIABETES MELLITUS INADEQUATE CONTROL [None]
  - DIZZINESS [None]
  - EMPHYSEMA [None]
  - ENCEPHALOPATHY [None]
  - FALL [None]
  - GASTROINTESTINAL HAEMORRHAGE [None]
  - HEADACHE [None]
  - HEMIPARESIS [None]
  - HYPOAESTHESIA [None]
  - MUCOSAL INFLAMMATION [None]
  - NECK PAIN [None]
  - PYELONEPHRITIS [None]
  - RENAL FAILURE ACUTE [None]
  - RENAL TUBULAR NECROSIS [None]
  - RESPIRATORY DISTRESS [None]
  - SPEECH DISORDER [None]
  - STOMATITIS [None]
  - SYNCOPE [None]
  - THROMBOCYTOPENIA [None]
  - URINARY TRACT INFECTION [None]
  - UROSEPSIS [None]
  - WEIGHT DECREASED [None]
